FAERS Safety Report 7477822-6 (Version None)
Quarter: 2011Q2

REPORT INFORMATION
  Report Type: 
  Country: None (occurrence: None)
  Receive Date: 20110513
  Receipt Date: 20110429
  Transmission Date: 20111010
  Serious: Yes (Hospitalization)
  Sender: FDA-Public Use
  Company Number: US-ELI_LILLY_AND_COMPANY-US200909005987

PATIENT
  Sex: Female

DRUGS (15)
  1. FORTEO [Suspect]
     Dosage: 20 UG, QD
     Route: 058
     Dates: start: 20110504
  2. COUMADIN [Concomitant]
  3. CALCIUM [Concomitant]
  4. FORTEO [Suspect]
     Dosage: 20 UG, QD
     Route: 058
     Dates: start: 20110301, end: 20110418
  5. FERROUS SULFATE TAB [Concomitant]
  6. FORTEO [Suspect]
     Dosage: 20 UG, DAILY (1/D)
     Route: 058
     Dates: start: 20110202
  7. MULTI-VITAMIN [Concomitant]
  8. FISH OIL [Concomitant]
  9. FORTEO [Suspect]
     Indication: OSTEOPOROSIS
     Dosage: 20 UG, DAILY (1/D)
     Route: 058
     Dates: start: 20090616
  10. ASPIRIN [Concomitant]
  11. DIOVAN [Concomitant]
  12. POTASSIUM [Concomitant]
  13. VITAMIN D [Concomitant]
  14. VERAPAMIL [Concomitant]
  15. NIACINAMIDE [Concomitant]

REACTIONS (3)
  - INJECTION SITE HAEMORRHAGE [None]
  - BLOOD CALCIUM INCREASED [None]
  - APPENDICITIS [None]
